FAERS Safety Report 25012531 (Version 1)
Quarter: 2025Q1

REPORT INFORMATION
  Report Type: Spontaneous
  Country: US (occurrence: US)
  Receive Date: 20250226
  Receipt Date: 20250226
  Transmission Date: 20250409
  Serious: Yes (Hospitalization)
  Sender: TEVA
  Company Number: US-TEVA-VS-3300259

PATIENT
  Age: 90 Year
  Sex: Female

DRUGS (1)
  1. QVAR [Suspect]
     Active Substance: BECLOMETHASONE DIPROPIONATE
     Indication: Asthma
     Dosage: 2 PUFFS TWICE DAILY
     Route: 065

REACTIONS (7)
  - Influenza [Unknown]
  - Device difficult to use [Unknown]
  - Incorrect dose administered [Unknown]
  - Illness [Unknown]
  - Product dispensing error [Unknown]
  - Device audio issue [Unknown]
  - Product dispensing issue [Unknown]
